FAERS Safety Report 6906985-3 (Version None)
Quarter: 2010Q3

REPORT INFORMATION
  Report Type: 
  Country: None (occurrence: None)
  Receive Date: 20100804
  Receipt Date: 20071217
  Transmission Date: 20110219
  Serious: No
  Sender: FDA-Public Use
  Company Number: US-PFIZER INC-2007104045

PATIENT
  Sex: Female

DRUGS (1)
  1. NARDIL [Suspect]

REACTIONS (4)
  - ANXIETY [None]
  - DRY MOUTH [None]
  - PHOBIA [None]
  - URINARY RETENTION [None]
